FAERS Safety Report 7685797-X (Version None)
Quarter: 2011Q3

REPORT INFORMATION
  Report Type: 
  Country: None (occurrence: None)
  Receive Date: 20110815
  Receipt Date: 20110815
  Transmission Date: 20111222
  Serious: Yes (Life-Threatening, Hospitalization)
  Sender: FDA-Public Use
  Company Number: None

PATIENT
  Age: 20 Year
  Sex: Male
  Weight: 90.718 kg

DRUGS (2)
  1. VYVANSE [Suspect]
     Indication: ATTENTION DEFICIT/HYPERACTIVITY DISORDER
     Dosage: 60 CAPSULES
     Dates: start: 20110708, end: 20110906
  2. VYVANSE [Suspect]
     Indication: ANXIETY
     Dosage: 60 CAPSULES
     Dates: start: 20110708, end: 20110906

REACTIONS (5)
  - SOCIAL PHOBIA [None]
  - SUICIDAL IDEATION [None]
  - PRODUCT QUALITY ISSUE [None]
  - DEPRESSION [None]
  - ABNORMAL BEHAVIOUR [None]
